FAERS Safety Report 14693711 (Version 4)
Quarter: 2019Q1

REPORT INFORMATION
  Report Type: Spontaneous
  Country: US (occurrence: US)
  Receive Date: 20180329
  Receipt Date: 20190329
  Transmission Date: 20190417
  Serious: Yes (Hospitalization)
  Sender: FDA-Public Use
  Company Number: US-TAKEDA-2018MPI003000

PATIENT
  Sex: Male

DRUGS (16)
  1. NINLARO [Suspect]
     Active Substance: IXAZOMIB CITRATE
     Dosage: 2.3 MILLIGRAM
     Route: 048
  2. DEXAMETHASON                       /00016001/ [Suspect]
     Active Substance: DEXAMETHASONE
     Indication: PRODUCT USED FOR UNKNOWN INDICATION
     Route: 065
  3. ACYCLOVIR                          /00587301/ [Concomitant]
     Active Substance: ACYCLOVIR
     Dosage: UNK
  4. GABAPENTIN. [Concomitant]
     Active Substance: GABAPENTIN
     Dosage: UNK
  5. VITAMIN D3 [Concomitant]
     Active Substance: CHOLECALCIFEROL
     Dosage: UNK
  6. LANTUS [Concomitant]
     Active Substance: INSULIN GLARGINE
     Dosage: UNK
  7. CALCIUM [Concomitant]
     Active Substance: CALCIUM
     Dosage: UNK
  8. PROTONIX                           /00661201/ [Concomitant]
     Active Substance: OMEPRAZOLE
     Dosage: UNK
  9. NEURONTIN [Concomitant]
     Active Substance: GABAPENTIN
  10. NINLARO [Suspect]
     Active Substance: IXAZOMIB CITRATE
     Indication: PLASMA CELL MYELOMA
     Dosage: 4 MILLIGRAM
     Route: 048
     Dates: start: 20180118, end: 20180319
  11. WELLBUTRIN [Concomitant]
     Active Substance: BUPROPION HYDROCHLORIDE
     Dosage: UNK
  12. REMERON [Concomitant]
     Active Substance: MIRTAZAPINE
     Dosage: UNK
  13. XARELTO [Concomitant]
     Active Substance: RIVAROXABAN
     Dosage: UNK
  14. NINLARO [Suspect]
     Active Substance: IXAZOMIB CITRATE
     Dosage: 3 MILLIGRAM
     Route: 048
  15. REVLIMID [Concomitant]
     Active Substance: LENALIDOMIDE
     Dosage: UNK
  16. NOVOLOG [Concomitant]
     Active Substance: INSULIN ASPART
     Dosage: UNK

REACTIONS (3)
  - Muscle spasms [Unknown]
  - Pneumonia [Not Recovered/Not Resolved]
  - Diarrhoea [Unknown]
